FAERS Safety Report 9253982 (Version 1)
Quarter: 2013Q2

REPORT INFORMATION
  Report Type: Spontaneous
  Country: US (occurrence: None)
  Receive Date: 20130422
  Receipt Date: 20130422
  Transmission Date: 20140414
  Serious: No
  Sender: FDA-Public Use
  Company Number: None

PATIENT
  Age: 86 Year
  Sex: Female

DRUGS (2)
  1. NEXIUM [Suspect]
     Indication: OESOPHAGEAL DISORDER
     Dosage: 2 DAY AM + PM
     Dates: start: 201203
  2. PROTONIX [Suspect]
     Dosage: 2 DAY AM + PM
     Dates: start: 201301

REACTIONS (2)
  - Alopecia [None]
  - Alopecia [None]
